FAERS Safety Report 6072070-9 (Version None)
Quarter: 2009Q1

REPORT INFORMATION
  Report Type: 
  Country: None (occurrence: None)
  Receive Date: 20090210
  Receipt Date: 20090206
  Transmission Date: 20090719
  Serious: Yes (Other)
  Sender: FDA-Public Use
  Company Number: CN-ASTRAZENECA-2008AP06438

PATIENT
  Age: 11734 Day
  Sex: Male

DRUGS (8)
  1. SEROQUEL [Suspect]
     Indication: AFFECTIVE DISORDER
     Route: 048
     Dates: start: 20080617, end: 20080619
  2. SEROQUEL [Suspect]
     Indication: BIPOLAR DISORDER
     Route: 048
     Dates: start: 20080617, end: 20080619
  3. SEROQUEL [Suspect]
     Route: 048
     Dates: start: 20080620, end: 20080724
  4. SEROQUEL [Suspect]
     Route: 048
     Dates: start: 20080620, end: 20080724
  5. SEROQUEL [Suspect]
     Route: 048
     Dates: start: 20080725
  6. SEROQUEL [Suspect]
     Route: 048
     Dates: start: 20080725
  7. SEROQUEL [Suspect]
     Route: 048
     Dates: end: 20081104
  8. SEROQUEL [Suspect]
     Route: 048
     Dates: end: 20081104

REACTIONS (3)
  - ATRIAL TACHYCARDIA [None]
  - ELECTROCARDIOGRAM ABNORMAL [None]
  - PALPITATIONS [None]
